FAERS Safety Report 10566137 (Version 1)
Quarter: 2014Q4

REPORT INFORMATION
  Report Type: Spontaneous
  Country: US (occurrence: US)
  Receive Date: 20141105
  Receipt Date: 20141105
  Transmission Date: 20150529
  Serious: Yes (Life-Threatening, Hospitalization, Other)
  Sender: FDA-Public Use
  Company Number: US-ELI_LILLY_AND_COMPANY-US201410011871

PATIENT
  Age: 58 Year
  Sex: Female

DRUGS (2)
  1. HUMALOG [Suspect]
     Active Substance: INSULIN LISPRO
     Indication: TYPE 2 DIABETES MELLITUS
     Dosage: UNK, TID
     Route: 065
     Dates: start: 2012
  2. LANTUS [Concomitant]
     Active Substance: INSULIN GLARGINE

REACTIONS (6)
  - Loss of consciousness [Unknown]
  - Diabetic ulcer [Recovered/Resolved]
  - Malaise [Unknown]
  - Stent malfunction [Unknown]
  - Cardiac arrest [Unknown]
  - Underdose [Unknown]

NARRATIVE: CASE EVENT DATE: 2013
